FAERS Safety Report 16202214 (Version 1)
Quarter: 2019Q2

REPORT INFORMATION
  Report Type: Spontaneous
  Country: IT (occurrence: IT)
  Receive Date: 20190416
  Receipt Date: 20190416
  Transmission Date: 20190711
  Serious: Yes (Other)
  Sender: FDA-Public Use
  Company Number: IT-ASTRAZENECA-2019SE55793

PATIENT
  Age: 21 Year
  Sex: Male

DRUGS (2)
  1. TAVANIC [Suspect]
     Active Substance: LEVOFLOXACIN
     Indication: DRUG ABUSE
     Dosage: 2.0G ONCE/SINGLE ADMINISTRATION
     Route: 048
     Dates: start: 20181116, end: 20181116
  2. LUCEN [Suspect]
     Active Substance: ESOMEPRAZOLE
     Indication: DRUG ABUSE
     Dosage: 100.0MG ONCE/SINGLE ADMINISTRATION
     Route: 048
     Dates: start: 20181116, end: 20181116

REACTIONS (3)
  - Depressed level of consciousness [Recovering/Resolving]
  - Drug abuse [Recovering/Resolving]
  - Muscle tightness [Recovering/Resolving]

NARRATIVE: CASE EVENT DATE: 20181116
